FAERS Safety Report 5133169-4 (Version None)
Quarter: 2006Q4

REPORT INFORMATION
  Report Type: 
  Country: None (occurrence: None)
  Receive Date: 20061023
  Receipt Date: 20061009
  Transmission Date: 20070319
  Serious: Yes (Other)
  Sender: FDA-Public Use
  Company Number: FR-BOEHRINGER INGELHEIM PHARMACEUTICALS, INC.-2006-FF-01047FF

PATIENT
  Sex: Female
  Weight: 70 kg

DRUGS (3)
  1. VIRAMUNE [Suspect]
     Indication: HIV INFECTION
     Route: 048
     Dates: start: 20010717, end: 20010728
  2. LAMIVUDINE [Concomitant]
     Indication: HIV INFECTION
     Route: 048
     Dates: start: 20010224, end: 20060713
  3. ZIDOVUDINE [Concomitant]
     Indication: HIV INFECTION
     Route: 048
     Dates: start: 20010224, end: 20060713

REACTIONS (8)
  - CHILLS [None]
  - CONJUNCTIVITIS [None]
  - FACE OEDEMA [None]
  - HEADACHE [None]
  - HEPATOTOXICITY [None]
  - LYMPHADENOPATHY [None]
  - RASH GENERALISED [None]
  - SKIN TOXICITY [None]
